FAERS Safety Report 10213785 (Version 2)
Quarter: 2014Q2

REPORT INFORMATION
  Report Type: Other
  Country: GB (occurrence: GB)
  Receive Date: 20140603
  Receipt Date: 20140603
  Transmission Date: 20141212
  Serious: Yes (Other)
  Sender: FDA-Public Use
  Company Number: GB-LUPIN PHARMACEUTICALS INC.-2011-01046

PATIENT
  Age: 76 Year
  Sex: Female
  Weight: 67 kg

DRUGS (29)
  1. SIMVASTATIN [Suspect]
     Indication: PRODUCT USED FOR UNKNOWN INDICATION
     Route: 065
     Dates: start: 20110725, end: 20110822
  2. SIMVASTATIN [Suspect]
     Route: 065
     Dates: start: 20110901
  3. AQUEOUS CREAM [Concomitant]
     Indication: PRODUCT USED FOR UNKNOWN INDICATION
     Route: 065
     Dates: start: 20110519, end: 20110616
  4. BECLOMETASONE [Concomitant]
     Indication: PRODUCT USED FOR UNKNOWN INDICATION
     Route: 065
     Dates: start: 20110614, end: 20110712
  5. BECLOMETASONE [Concomitant]
     Route: 065
     Dates: start: 20110718
  6. CALCICHEW D3 [Concomitant]
     Indication: PRODUCT USED FOR UNKNOWN INDICATION
     Route: 065
     Dates: start: 20110519
  7. CLOPIDOGREL [Concomitant]
     Indication: PRODUCT USED FOR UNKNOWN INDICATION
     Route: 065
     Dates: start: 20110617, end: 20110717
  8. DOCUSATE SODIUM [Concomitant]
     Indication: PRODUCT USED FOR UNKNOWN INDICATION
     Route: 065
     Dates: start: 20110718
  9. DOCUSATE SODIUM [Concomitant]
     Route: 065
     Dates: start: 20110519, end: 20110714
  10. GABAPENTIN [Concomitant]
     Indication: PRODUCT USED FOR UNKNOWN INDICATION
     Route: 065
     Dates: start: 20110718
  11. GABAPENTIN [Concomitant]
     Route: 065
     Dates: start: 20110519, end: 20110712
  12. HYDROXOCOBALAMIN [Concomitant]
     Indication: PRODUCT USED FOR UNKNOWN INDICATION
     Route: 065
     Dates: start: 20110816, end: 20110817
  13. HYDROXOCOBALAMIN [Concomitant]
     Route: 065
     Dates: start: 20110720, end: 20110721
  14. HYDROXOCOBALAMIN [Concomitant]
     Route: 065
     Dates: start: 20110622, end: 20110623
  15. HYPROMELLOSE [Concomitant]
     Indication: PRODUCT USED FOR UNKNOWN INDICATION
     Route: 065
     Dates: start: 20110718
  16. HYPROMELLOSE [Concomitant]
     Route: 065
     Dates: start: 20110519, end: 20110712
  17. LOFEPRAMINE [Concomitant]
     Indication: PRODUCT USED FOR UNKNOWN INDICATION
     Route: 065
     Dates: start: 20110418
  18. LORATADINE [Concomitant]
     Indication: PRODUCT USED FOR UNKNOWN INDICATION
     Route: 065
     Dates: start: 20110617, end: 20110717
  19. MEPTAZINOL [Concomitant]
     Indication: PRODUCT USED FOR UNKNOWN INDICATION
     Route: 065
     Dates: start: 20110815
  20. OMEPRAZOLE [Concomitant]
     Indication: PRODUCT USED FOR UNKNOWN INDICATION
     Route: 065
     Dates: start: 20110718
  21. OMEPRAZOLE [Concomitant]
     Route: 065
     Dates: start: 20110519, end: 20110712
  22. PARACETAMOL [Concomitant]
     Indication: PRODUCT USED FOR UNKNOWN INDICATION
     Route: 065
     Dates: start: 20110614, end: 20110626
  23. RAMIPRIL [Concomitant]
     Indication: PRODUCT USED FOR UNKNOWN INDICATION
     Route: 065
     Dates: start: 20110718
  24. RAMIPRIL [Concomitant]
     Route: 065
     Dates: start: 20110519, end: 20110712
  25. SLOZEM [Concomitant]
     Indication: PRODUCT USED FOR UNKNOWN INDICATION
     Route: 065
     Dates: start: 20110718
  26. SLOZEM [Concomitant]
     Route: 065
     Dates: start: 20110519, end: 20110712
  27. TRIMETHOPRIM [Concomitant]
     Indication: PRODUCT USED FOR UNKNOWN INDICATION
     Route: 065
     Dates: start: 20110608, end: 20110615
  28. ZOPICLONE [Concomitant]
     Indication: PRODUCT USED FOR UNKNOWN INDICATION
     Route: 065
     Dates: start: 20110718
  29. ZOPICLONE [Concomitant]
     Route: 065
     Dates: start: 20110519, end: 20110712

REACTIONS (1)
  - Contusion [Recovering/Resolving]
